FAERS Safety Report 23319769 (Version 1)
Quarter: 2023Q4

REPORT INFORMATION
  Report Type: Spontaneous
  Country: TW (occurrence: TW)
  Receive Date: 20231220
  Receipt Date: 20231220
  Transmission Date: 20240110
  Serious: Yes (Other)
  Sender: FDA-Public Use
  Company Number: TW-GILEAD-2023-0655394

PATIENT
  Age: 55 Year
  Sex: Female

DRUGS (1)
  1. TRODELVY [Suspect]
     Active Substance: SACITUZUMAB GOVITECAN-HZIY
     Indication: Breast cancer
     Dosage: 3 CYCLES
     Route: 065

REACTIONS (1)
  - Disease progression [Unknown]
